FAERS Safety Report 6759993-X (Version None)
Quarter: 2010Q2

REPORT INFORMATION
  Report Type: 
  Country: None (occurrence: None)
  Receive Date: 20100608
  Receipt Date: 20100527
  Transmission Date: 20101027
  Serious: Yes (Other)
  Sender: FDA-Public Use
  Company Number: TR-SANOFI-AVENTIS-2010SA030554

PATIENT
  Age: 57 Year
  Sex: Female

DRUGS (1)
  1. HYDROXYCHLOROQUINE SULFATE [Suspect]
     Indication: SJOGREN'S SYNDROME
     Route: 065

REACTIONS (5)
  - LEUKOCYTOCLASTIC VASCULITIS [None]
  - NEUROPATHY PERIPHERAL [None]
  - REBOUND EFFECT [None]
  - RETINAL TOXICITY [None]
  - VISUAL ACUITY REDUCED [None]
